FAERS Safety Report 8453555-4 (Version None)
Quarter: 2012Q2

REPORT INFORMATION
  Report Type: 
  Country: None (occurrence: None)
  Receive Date: 20120620
  Receipt Date: 20120618
  Transmission Date: 20120825
  Serious: Yes (Other)
  Sender: FDA-Public Use
  Company Number: US-PFIZER INC-2012146379

PATIENT
  Sex: Female
  Weight: 50.794 kg

DRUGS (5)
  1. CLONAZEPAM [Concomitant]
     Indication: PANIC ATTACK
     Dosage: 1 MG, 2X/DAY
  2. WARFARIN SODIUM [Concomitant]
     Indication: CARDIAC DISORDER
     Dosage: 3MG ONCE ON TUES, FRI, SUN AND 4MG ONCE ON MON, WED, THURS, SAT
  3. CLONIDINE [Concomitant]
     Indication: ANXIETY
     Dosage: UNK
  4. CITALOPRAM [Concomitant]
     Indication: DEPRESSION
     Dosage: 20 MG, 3X/DAY
  5. REVATIO [Suspect]
     Indication: CARDIAC DISORDER
     Dosage: 20 MG, 3X/DAY
     Dates: start: 20120302

REACTIONS (6)
  - HYPOAESTHESIA [None]
  - PARAESTHESIA [None]
  - HEADACHE [None]
  - CEREBROVASCULAR ACCIDENT [None]
  - MUSCULOSKELETAL DISORDER [None]
  - DIPLOPIA [None]
